FAERS Safety Report 13211775 (Version 1)
Quarter: 2017Q1

REPORT INFORMATION
  Report Type: Spontaneous
  Country: HR (occurrence: HR)
  Receive Date: 20170210
  Receipt Date: 20170210
  Transmission Date: 20170428
  Serious: Yes (Other)
  Sender: FDA-Public Use
  Company Number: HR-SUNOVION-2017SUN000515

PATIENT

DRUGS (4)
  1. INDACATEROL [Suspect]
     Active Substance: INDACATEROL
     Indication: CHRONIC OBSTRUCTIVE PULMONARY DISEASE
     Dosage: 150 ?G, QD
     Route: 055
  2. RYTMONORM [Suspect]
     Active Substance: PROPAFENONE
     Indication: ARRHYTHMIA
     Dosage: 150 MG, BID
     Route: 048
  3. DULOXETINE HYDROCHLORIDE. [Suspect]
     Active Substance: DULOXETINE HYDROCHLORIDE
     Indication: HYPERLIPIDAEMIA
     Dosage: 30 MG, QD
     Route: 048
     Dates: start: 20170115, end: 20170116
  4. TULIP [Suspect]
     Active Substance: ATORVASTATIN
     Indication: HYPERLIPIDAEMIA
     Dosage: 10 MG, QD
     Route: 048

REACTIONS (5)
  - Muscle contractions involuntary [Not Recovered/Not Resolved]
  - Dry mouth [Not Recovered/Not Resolved]
  - Urticaria [Not Recovered/Not Resolved]
  - Lip swelling [Not Recovered/Not Resolved]
  - Feeling cold [Not Recovered/Not Resolved]

NARRATIVE: CASE EVENT DATE: 20170115
